FAERS Safety Report 13036346 (Version 3)
Quarter: 2017Q1

REPORT INFORMATION
  Report Type: Report from Study
  Country: US (occurrence: US)
  Receive Date: 20161216
  Receipt Date: 20170106
  Transmission Date: 20170428
  Serious: Yes (Hospitalization)
  Sender: FDA-Public Use
  Company Number: US-BAYER-2016-169921

PATIENT
  Age: 39 Year
  Sex: Male
  Weight: 85.26 kg

DRUGS (5)
  1. ADEMPAS [Suspect]
     Active Substance: RIOCIGUAT
     Indication: PULMONARY ARTERIAL HYPERTENSION
     Dosage: 1 MG, TID
     Route: 048
  2. ADEMPAS [Suspect]
     Active Substance: RIOCIGUAT
     Indication: PULMONARY ARTERIAL HYPERTENSION
     Dosage: 1.5 MG, TID
     Route: 048
  3. ADEMPAS [Suspect]
     Active Substance: RIOCIGUAT
     Indication: PULMONARY ARTERIAL HYPERTENSION
     Dosage: 2.5 MG, TID
     Route: 048
  4. ADEMPAS [Suspect]
     Active Substance: RIOCIGUAT
     Indication: PULMONARY ARTERIAL HYPERTENSION
     Dosage: UNK
     Route: 048
     Dates: start: 20160811
  5. ADEMPAS [Suspect]
     Active Substance: RIOCIGUAT
     Indication: PULMONARY ARTERIAL HYPERTENSION
     Dosage: 2 MG, TID
     Route: 048

REACTIONS (19)
  - Endarterectomy [None]
  - Paraesthesia [Recovered/Resolved]
  - Constipation [Unknown]
  - Chest pain [Not Recovered/Not Resolved]
  - Breath sounds abnormal [Unknown]
  - Chest discomfort [None]
  - Back pain [Unknown]
  - Vision blurred [Unknown]
  - Pain in extremity [None]
  - Pain [None]
  - Lacrimation increased [None]
  - Cough [None]
  - Insomnia [None]
  - Nasopharyngitis [None]
  - Rhinorrhoea [None]
  - Dysphagia [None]
  - Fatigue [Unknown]
  - Discomfort [None]
  - Dyspnoea [Unknown]
